FAERS Safety Report 8836840 (Version 2)
Quarter: 2012Q4

REPORT INFORMATION
  Report Type: 
  Country: BR (occurrence: BR)
  Receive Date: 20121012
  Receipt Date: 20121113
  Transmission Date: 20130627
  Serious: Yes (Hospitalization)
  Sender: FDA-Public Use
  Company Number: BR-PFIZER INC-2012251871

PATIENT
  Age: 75 Year
  Sex: Female

DRUGS (4)
  1. ATENOLOL [Suspect]
     Indication: BLOOD PRESSURE HIGH
     Dosage: daily
     Route: 048
  2. CRESTOR [Suspect]
     Indication: CAROTID OCCLUSION
     Dosage: 20 mg, 1x/day
     Route: 048
     Dates: start: 2011
  3. TORLOS [Concomitant]
     Indication: BLOOD PRESSURE HIGH
     Dosage: UNK
     Route: 048
  4. LOSARTAN [Concomitant]
     Indication: BLOOD PRESSURE HIGH
     Dosage: UNK
     Route: 048

REACTIONS (1)
  - Coronary artery occlusion [Recovered/Resolved]
